FAERS Safety Report 15552067 (Version 1)
Quarter: 2018Q4

REPORT INFORMATION
  Report Type: Spontaneous
  Country: US (occurrence: US)
  Receive Date: 20181025
  Receipt Date: 20181025
  Transmission Date: 20190205
  Serious: No
  Sender: FDA-Public Use
  Company Number: US-PFIZER INC-2018372337

PATIENT
  Age: 46 Year
  Sex: Female
  Weight: 78.46 kg

DRUGS (3)
  1. FLECTOR [Suspect]
     Active Substance: DICLOFENAC EPOLAMINE
     Indication: INTERVERTEBRAL DISC PROTRUSION
     Dosage: UNK UNK, DAILY (1 PATCH PER DAY CUT IN HALF, 1/2 ON THE NECK AND 1/2 ON THE BACK)
     Route: 062
     Dates: start: 201807
  2. FLECTOR [Suspect]
     Active Substance: DICLOFENAC EPOLAMINE
     Indication: SCIATIC NERVE NEUROPATHY
  3. FLECTOR [Suspect]
     Active Substance: DICLOFENAC EPOLAMINE
     Indication: EXOSTOSIS

REACTIONS (4)
  - Product dose omission [Unknown]
  - Condition aggravated [Unknown]
  - Intentional product misuse [Unknown]
  - Visual impairment [Unknown]

NARRATIVE: CASE EVENT DATE: 2018
